FAERS Safety Report 8376017-1 (Version None)
Quarter: 2012Q2

REPORT INFORMATION
  Report Type: 
  Country: None (occurrence: None)
  Receive Date: 20120522
  Receipt Date: 20120515
  Transmission Date: 20120825
  Serious: Yes (Hospitalization)
  Sender: FDA-Public Use
  Company Number: PHHO2012AT007414

PATIENT
  Sex: Male

DRUGS (7)
  1. SIMVASTATIN [Concomitant]
     Indication: HYPERLIPIDAEMIA
     Dosage: 40 MG, QD
     Route: 048
     Dates: start: 19980101
  2. MARCUMAR [Concomitant]
     Indication: ATRIAL FIBRILLATION
     Dosage: ON DEMAND
     Dates: start: 19980101
  3. ALISKIREN [Suspect]
     Indication: CARDIAC FAILURE
     Dosage: UNK
     Route: 048
     Dates: start: 20090617, end: 20120415
  4. EPLERENONE [Concomitant]
     Indication: CARDIAC FAILURE CONGESTIVE
     Dosage: 25 MG, QD
     Route: 048
     Dates: start: 19980101, end: 20120412
  5. LASIX [Concomitant]
     Indication: CARDIAC FAILURE CHRONIC
     Dosage: 125 MG, QD
     Route: 048
     Dates: start: 20100119
  6. DIGIMERCK [Concomitant]
     Indication: ATRIAL FIBRILLATION
     Dosage: 0.07 MG, QD
     Route: 048
     Dates: start: 19980101
  7. ALISKIREN [Suspect]
     Dosage: UNK
     Route: 048
     Dates: start: 20120517

REACTIONS (2)
  - POLYCYTHAEMIA [None]
  - CARDIAC FAILURE CONGESTIVE [None]
